FAERS Safety Report 19908069 (Version 1)
Quarter: 2021Q4

REPORT INFORMATION
  Report Type: Spontaneous
  Country: TH (occurrence: TH)
  Receive Date: 20211002
  Receipt Date: 20211002
  Transmission Date: 20220303
  Serious: Yes (Other)
  Sender: FDA-Public Use
  Company Number: TH-ROCHE-2923704

PATIENT
  Age: 63 Year
  Sex: Male

DRUGS (2)
  1. ATEZOLIZUMAB [Suspect]
     Active Substance: ATEZOLIZUMAB
     Indication: Product used for unknown indication
     Route: 065
  2. BEVACIZUMAB [Suspect]
     Active Substance: BEVACIZUMAB
     Indication: Product used for unknown indication
     Route: 065

REACTIONS (6)
  - Hepatitis virus-associated nephropathy [Unknown]
  - Hepatocellular carcinoma [Unknown]
  - Glomerulonephritis membranous [Unknown]
  - Focal segmental glomerulosclerosis [Unknown]
  - Proteinuria [Unknown]
  - Alpha 1 foetoprotein decreased [Unknown]
